FAERS Safety Report 21930568 (Version 1)
Quarter: 2023Q1

REPORT INFORMATION
  Report Type: Spontaneous
  Country: US (occurrence: None)
  Receive Date: 20230130
  Receipt Date: 20230130
  Transmission Date: 20230417
  Serious: No
  Sender: FDA-Public Use
  Company Number: None

PATIENT
  Age: 73 Year
  Sex: Female

DRUGS (1)
  1. PROLIA [Suspect]
     Active Substance: DENOSUMAB
     Indication: Osteoporosis
     Dosage: 60MG EVERY 6 MONTHS SUBCUTANEOUSLY?
     Route: 058
     Dates: start: 202207

REACTIONS (2)
  - Device malfunction [None]
  - Product dose omission issue [None]

NARRATIVE: CASE EVENT DATE: 20230127
